FAERS Safety Report 9911876 (Version 1)
Quarter: 2014Q1

REPORT INFORMATION
  Report Type: Spontaneous
  Country: US (occurrence: US)
  Receive Date: 20140219
  Receipt Date: 20140219
  Transmission Date: 20141002
  Serious: No
  Sender: FDA-Public Use
  Company Number: US-MYLANLABS-2013S1013701

PATIENT
  Sex: Female

DRUGS (7)
  1. CLEOCIN [Suspect]
     Dosage: UNK
  2. EPINEPHRINE [Suspect]
     Dosage: UNK
  3. PERCOCET [Suspect]
     Dosage: UNK
  4. IODINE [Suspect]
     Dosage: UNK
  5. DEMEROL [Suspect]
     Dosage: UNK
  6. ATIVAN [Suspect]
     Dosage: UNK
  7. LORAZEPAM [Suspect]
     Dosage: UNK

REACTIONS (1)
  - Drug hypersensitivity [Unknown]
